FAERS Safety Report 9636482 (Version 2)
Quarter: 2020Q3

REPORT INFORMATION
  Report Type: Spontaneous
  Country: GB (occurrence: GB)
  Receive Date: 20131021
  Receipt Date: 20131031
  Transmission Date: 20201105
  Serious: Yes (Other)
  Sender: FDA-Public Use
  Company Number: GB-ROCHE-1287060

PATIENT
  Sex: Female

DRUGS (10)
  1. IBANDRONIC ACID. [Suspect]
     Active Substance: IBANDRONIC ACID
     Indication: PRODUCT USED FOR UNKNOWN INDICATION
     Route: 065
  2. HERCEPTIN [Suspect]
     Active Substance: TRASTUZUMAB
     Indication: PRODUCT USED FOR UNKNOWN INDICATION
     Route: 065
     Dates: start: 200410
  3. TAMOXIFEN [Concomitant]
     Active Substance: TAMOXIFEN
  4. CYCLOPHOSPHAMIDE. [Concomitant]
     Active Substance: CYCLOPHOSPHAMIDE
  5. FEMARA [Concomitant]
     Active Substance: LETROZOLE
  6. EPIRUBICIN [Concomitant]
     Active Substance: EPIRUBICIN
  7. METHOTREXATE. [Concomitant]
     Active Substance: METHOTREXATE
  8. VINORELBINE [Concomitant]
     Active Substance: VINORELBINE TARTRATE
  9. CAPECITABINE. [Suspect]
     Active Substance: CAPECITABINE
     Indication: PRODUCT USED FOR UNKNOWN INDICATION
     Route: 065
     Dates: start: 201205
  10. TRASTUZUMAB EMTANSINE [Suspect]
     Active Substance: ADO-TRASTUZUMAB EMTANSINE
     Indication: PRODUCT USED FOR UNKNOWN INDICATION
     Route: 065

REACTIONS (23)
  - Nasal discomfort [Unknown]
  - Drug ineffective [Unknown]
  - Lethargy [Unknown]
  - Osteonecrosis of jaw [Unknown]
  - Insomnia [Unknown]
  - Feeling abnormal [Unknown]
  - Hypoaesthesia [Unknown]
  - Metastases to central nervous system [Unknown]
  - Skin fissures [Unknown]
  - Osteonecrosis [Unknown]
  - Pain in extremity [Unknown]
  - Fatigue [Unknown]
  - Oral pain [Unknown]
  - Tongue ulceration [Unknown]
  - Metastases to lung [Unknown]
  - Mass [Unknown]
  - Gait disturbance [Unknown]
  - Depressed mood [Unknown]
  - Lip pain [Unknown]
  - Ejection fraction decreased [Unknown]
  - Vocal cord paralysis [Unknown]
  - Pain [Unknown]
  - Disease progression [Unknown]
